FAERS Safety Report 5346107-6 (Version None)
Quarter: 2007Q2

REPORT INFORMATION
  Report Type: 
  Country: None (occurrence: None)
  Receive Date: 20070430
  Receipt Date: 20070130
  Transmission Date: 20071010
  Serious: Yes (Life-Threatening, Hospitalization)
  Sender: FDA-Public Use
  Company Number: 260469

PATIENT
  Age: 56 Year
  Sex: Female
  Weight: 83.9 kg

DRUGS (15)
  1. LEVEMIR [Suspect]
     Indication: DIABETES MELLITUS INSULIN-DEPENDENT
     Dosage: 20 LU, BID, SUBCUTANEOUS
     Route: 058
     Dates: start: 20070101
  2. NOVOLOG [Suspect]
     Indication: DIABETES MELLITUS INSULIN-DEPENDENT
     Dosage: SLIDING SCALE, SUBCUTANEOUS
     Route: 058
  3. CLONIDINE [Concomitant]
  4. NORVASC [Concomitant]
  5. MINOXIDIL [Concomitant]
  6. DIOVAN [Concomitant]
  7. ZESTRIL [Concomitant]
  8. LASIX [Concomitant]
  9. ZAROXOLYN [Concomitant]
  10. NEURONTIN [Concomitant]
  11. FLEXERIL [Concomitant]
  12. LEXAPRO [Concomitant]
  13. MORPHINE [Concomitant]
  14. TRUSOPT [Concomitant]
  15. ADVAIR DISKUS 100/50 [Concomitant]

REACTIONS (1)
  - HYPOGLYCAEMIC UNCONSCIOUSNESS [None]
